FAERS Safety Report 13851708 (Version 1)
Quarter: 2017Q3

REPORT INFORMATION
  Report Type: Spontaneous
  Country: GB (occurrence: GB)
  Receive Date: 20170810
  Receipt Date: 20170810
  Transmission Date: 20171127
  Serious: Yes (Other)
  Sender: FDA-Public Use
  Company Number: GB-009507513-1708GBR003315

PATIENT
  Age: 86 Year
  Sex: Female

DRUGS (20)
  1. METHYLDOPA. [Suspect]
     Active Substance: METHYLDOPA
     Dosage: 1 G, TID
     Route: 048
     Dates: start: 20170721, end: 20170723
  2. BEZAFIBRATE [Concomitant]
     Active Substance: BEZAFIBRATE
  3. FOLIC ACID. [Concomitant]
     Active Substance: FOLIC ACID
  4. PREDNISOLONE. [Concomitant]
     Active Substance: PREDNISOLONE
  5. RANITIDINE. [Concomitant]
     Active Substance: RANITIDINE
  6. CYCLIZINE [Concomitant]
     Active Substance: CYCLIZINE
  7. SERTRALINE HYDROCHLORIDE. [Concomitant]
     Active Substance: SERTRALINE HYDROCHLORIDE
  8. MIRTAZAPINE. [Suspect]
     Active Substance: MIRTAZAPINE
     Dosage: 45 MG, AT NIGHT
     Route: 048
  9. BISOPROLOL [Concomitant]
     Active Substance: BISOPROLOL
  10. CHOLECALCIFEROL [Concomitant]
     Active Substance: CHOLECALCIFEROL
  11. FUROSEMIDE. [Concomitant]
     Active Substance: FUROSEMIDE
  12. ATORVASTATIN [Concomitant]
     Active Substance: ATORVASTATIN
  13. MELATONIN [Suspect]
     Active Substance: MELATONIN
     Dosage: 2 MG, AT NIGHT.
     Route: 048
     Dates: start: 20170721, end: 20170723
  14. METOCLOPRAMIDE. [Concomitant]
     Active Substance: METOCLOPRAMIDE
  15. OMEPRAZOLE. [Concomitant]
     Active Substance: OMEPRAZOLE
  16. TEMAZEPAM. [Suspect]
     Active Substance: TEMAZEPAM
     Dosage: 10 MG, AT NIGHT
     Route: 048
     Dates: start: 20170721, end: 20170723
  17. MAGNESIUM ASPARTATE [Concomitant]
     Active Substance: MAGNESIUM ASPARTATE
  18. WARFARIN [Concomitant]
     Active Substance: WARFARIN
  19. SPIRONOLACTONE. [Suspect]
     Active Substance: SPIRONOLACTONE
     Dosage: 50 MG, EVERY MORNING
     Route: 048
     Dates: start: 20170721, end: 20170723
  20. AZATHIOPRINE. [Concomitant]
     Active Substance: AZATHIOPRINE

REACTIONS (4)
  - Blood pressure decreased [Recovered/Resolved]
  - Confusional state [Recovered/Resolved]
  - Somnolence [Recovered/Resolved]
  - Drug prescribing error [Unknown]

NARRATIVE: CASE EVENT DATE: 20170721
